FAERS Safety Report 20188024 (Version 1)
Quarter: 2021Q4

REPORT INFORMATION
  Report Type: Spontaneous
  Country: US (occurrence: None)
  Receive Date: 20211215
  Receipt Date: 20211215
  Transmission Date: 20220303
  Serious: No
  Sender: FDA-Public Use
  Company Number: None

PATIENT
  Age: 68 Year
  Sex: Female
  Weight: 71.7 kg

DRUGS (2)
  1. CISPLATIN [Suspect]
     Active Substance: CISPLATIN
     Dates: end: 20211014
  2. ALIMTA [Suspect]
     Active Substance: PEMETREXED DISODIUM
     Dates: end: 20211014

REACTIONS (2)
  - Hyperglycaemia [None]
  - Product dose omission issue [None]

NARRATIVE: CASE EVENT DATE: 20211104
